FAERS Safety Report 18927693 (Version 1)
Quarter: 2021Q1

REPORT INFORMATION
  Report Type: Report from Study
  Country: FR (occurrence: FR)
  Receive Date: 20210223
  Receipt Date: 20210223
  Transmission Date: 20210420
  Serious: Yes (Hospitalization, Other)
  Sender: FDA-Public Use
  Company Number: FR-ELI_LILLY_AND_COMPANY-FR202102002476

PATIENT
  Age: 76 Year
  Sex: Female

DRUGS (11)
  1. ABRAXANE [Concomitant]
     Active Substance: PACLITAXEL
     Indication: NEUTROPENIA
     Dosage: 90 MG/M2, UNKNOWN
     Route: 042
     Dates: start: 20190814, end: 20191024
  2. SALBUTAMOL [Concomitant]
     Active Substance: ALBUTEROL
     Indication: CHRONIC OBSTRUCTIVE PULMONARY DISEASE
     Dosage: 600 MICROGRAM, PRN
     Route: 055
     Dates: start: 2014
  3. ABRAXANE [Concomitant]
     Active Substance: PACLITAXEL
     Indication: DUCTAL ADENOCARCINOMA OF PANCREAS
     Dosage: 125 MG/M2, UNKNOWN
     Route: 042
     Dates: start: 20190614, end: 20190614
  4. ABRAXANE [Concomitant]
     Active Substance: PACLITAXEL
     Dosage: 70 MG/M2, UNKNOWN
     Route: 042
     Dates: start: 20191121, end: 20191128
  5. GEMCITABINE HYDROCHLORIDE. [Suspect]
     Active Substance: GEMCITABINE HYDROCHLORIDE
     Indication: DUCTAL ADENOCARCINOMA OF PANCREAS
     Dosage: 912 MG, UNKNOWN
     Route: 042
     Dates: start: 20190614, end: 20200402
  6. ABRAXANE [Concomitant]
     Active Substance: PACLITAXEL
     Indication: PARAESTHESIA
     Dosage: 70 MG/M2, UNKNOWN
     Route: 042
     Dates: start: 20191107, end: 20191121
  7. ASPARAGINASE [Concomitant]
     Active Substance: ASPARAGINASE
     Indication: DUCTAL ADENOCARCINOMA OF PANCREAS
     Dosage: 100 IU/KG, UNKNOWN
     Route: 042
     Dates: start: 20190614, end: 20200402
  8. SYMBICORT [Concomitant]
     Active Substance: BUDESONIDE\FORMOTEROL FUMARATE DIHYDRATE
     Indication: CHRONIC OBSTRUCTIVE PULMONARY DISEASE
     Dosage: 200 MICROGRAM
     Route: 055
     Dates: start: 2014
  9. ABRAXANE [Concomitant]
     Active Substance: PACLITAXEL
     Indication: NEUROPATHY PERIPHERAL
     Dosage: 100 MG/M2, UNKNOWN
     Route: 042
     Dates: start: 20190628, end: 20190725
  10. SPIRIVA [Concomitant]
     Active Substance: TIOTROPIUM BROMIDE MONOHYDRATE
     Indication: CHRONIC OBSTRUCTIVE PULMONARY DISEASE
     Dosage: 5 MICROGRAM
     Route: 055
     Dates: start: 2014
  11. BILASTINE [Concomitant]
     Active Substance: BILASTINE
     Indication: SEASONAL ALLERGY
     Dosage: 20 MILLIGRAM
     Route: 048
     Dates: start: 20200403

REACTIONS (4)
  - Haemolytic anaemia [Unknown]
  - Thrombocytopenia [Unknown]
  - Renal failure [Unknown]
  - Thrombotic microangiopathy [Not Recovered/Not Resolved]

NARRATIVE: CASE EVENT DATE: 20200409
